FAERS Safety Report 9465051 (Version 1)
Quarter: 2013Q3

REPORT INFORMATION
  Report Type: Spontaneous
  Country: NO (occurrence: NO)
  Receive Date: 20130819
  Receipt Date: 20130819
  Transmission Date: 20140515
  Serious: Yes (Death)
  Sender: FDA-Public Use
  Company Number: NO-TEVA-425356ISR

PATIENT
  Age: 66 Year
  Sex: Female

DRUGS (1)
  1. TEMOZOLOMIDE [Suspect]
     Indication: GLIOBLASTOMA
     Route: 048
     Dates: start: 20130529, end: 20130624

REACTIONS (5)
  - Neutropenia [Fatal]
  - Agranulocytosis [Fatal]
  - Thrombocytopenia [Fatal]
  - Bone marrow failure [Fatal]
  - Infection [Fatal]
